FAERS Safety Report 6726010-7 (Version None)
Quarter: 2010Q2

REPORT INFORMATION
  Report Type: 
  Country: None (occurrence: None)
  Receive Date: 20100512
  Receipt Date: 20100430
  Transmission Date: 20101027
  Serious: Yes (Hospitalization)
  Sender: FDA-Public Use
  Company Number: 7003727

PATIENT
  Age: 45 Year
  Sex: Female

DRUGS (4)
  1. REBIF [Suspect]
     Indication: MULTIPLE SCLEROSIS
     Dosage: 22 MCG, 3 IN 1 WK, SUBCUTANEOUS
     Route: 058
     Dates: start: 20060101
  2. SLEEPING MEDICATION (ALL OTHER THERAPEUTIC PRODUCT) [Concomitant]
  3. ANTIDEPRESSANT MEDICATION [Concomitant]
  4. BLOOD PRESSURE CONTROL MEDICATION ( CARDIOVASCULAR SYSTEM DRUGS) [Concomitant]

REACTIONS (4)
  - BLOOD PRESSURE INCREASED [None]
  - INJECTION SITE ERYTHEMA [None]
  - MULTIPLE SCLEROSIS RELAPSE [None]
  - TIC [None]
